FAERS Safety Report 6097783-4 (Version None)
Quarter: 2009Q1

REPORT INFORMATION
  Report Type: 
  Country: None (occurrence: None)
  Receive Date: 20090227
  Receipt Date: 20090216
  Transmission Date: 20090719
  Serious: Yes (Other)
  Sender: FDA-Public Use
  Company Number: DE-GENENTECH-277765

PATIENT
  Age: 55 Year
  Sex: Male

DRUGS (4)
  1. BEVACIZUMAB [Suspect]
     Indication: METASTASES TO LIVER
     Route: 065
  2. FLUOROURACIL [Suspect]
     Indication: METASTASES TO LIVER
     Route: 065
  3. FOLINIC ACID [Suspect]
     Indication: METASTASES TO LIVER
  4. IRINOTECAN HCL [Suspect]
     Indication: METASTASES TO LIVER
     Route: 065

REACTIONS (1)
  - HEPATIC FAILURE [None]
